FAERS Safety Report 5291068-1 (Version None)
Quarter: 2007Q2

REPORT INFORMATION
  Report Type: 
  Country: None (occurrence: None)
  Receive Date: 20070402
  Receipt Date: 20070320
  Transmission Date: 20071010
  Serious: Yes (Death)
  Sender: FDA-Public Use
  Company Number: 238808

PATIENT
  Age: 67 Year
  Sex: Male
  Weight: 62.5 kg

DRUGS (3)
  1. MABTHERA (RITUXIMAB) CONC FOR SOLUTION FOR INFUSION [Suspect]
     Indication: RHEUMATOID ARTHRITIS
     Dosage: 1 G, 2/WEEK, INTRAVENOUS
     Route: 042
     Dates: start: 20060701, end: 20060701
  2. METHOTREXATE [Concomitant]
  3. FLUTICASONE (FLUTICASONE PROPIONATE) [Concomitant]

REACTIONS (3)
  - ACUTE MYOCARDIAL INFARCTION [None]
  - CARDIOGENIC SHOCK [None]
  - RESPIRATORY ARREST [None]
